FAERS Safety Report 19608819 (Version 4)
Quarter: 2021Q3

REPORT INFORMATION
  Report Type: Report from Study
  Country: FR (occurrence: FR)
  Receive Date: 20210726
  Receipt Date: 20210907
  Transmission Date: 20211014
  Serious: Yes (Hospitalization, Other)
  Sender: FDA-Public Use
  Company Number: FR-GLAXOSMITHKLINE-FR2021GSK156578

PATIENT
  Age: 54 Year
  Sex: Female
  Weight: 65 kg

DRUGS (12)
  1. CARBOPLATIN. [Suspect]
     Active Substance: CARBOPLATIN
     Dosage: UNK
     Dates: end: 20210329
  2. BEVACIZUMAB. [Suspect]
     Active Substance: BEVACIZUMAB
     Indication: OVARIAN CANCER
     Dosage: UNK
     Route: 042
  3. BEVACIZUMAB. [Suspect]
     Active Substance: BEVACIZUMAB
     Dosage: 950 MG/KG
     Route: 042
     Dates: start: 20210712, end: 20210712
  4. CARBOPLATIN. [Suspect]
     Active Substance: CARBOPLATIN
     Indication: OVARIAN CANCER
     Dosage: 5 AUC
     Route: 042
     Dates: start: 20201026, end: 20201026
  5. PACLITAXEL. [Suspect]
     Active Substance: PACLITAXEL
     Dosage: UNK
     Route: 042
     Dates: end: 20210329
  6. CISPLATIN. [Concomitant]
     Active Substance: CISPLATIN
     Indication: OVARIAN CANCER
     Dosage: UNK
  7. DOCETAXEL. [Concomitant]
     Active Substance: DOCETAXEL
     Indication: OVARIAN CANCER
     Dosage: UNK
  8. DOSTARLIMAB [Suspect]
     Active Substance: DOSTARLIMAB
     Indication: OVARIAN CANCER
     Dosage: 500 MG
     Dates: start: 20201119, end: 20201119
  9. PACLITAXEL. [Suspect]
     Active Substance: PACLITAXEL
     Indication: OVARIAN CANCER
     Dosage: 294 MG
     Route: 042
     Dates: start: 20201028, end: 20201028
  10. ASTRAZENECA COVID?19 VACCINE [Concomitant]
     Active Substance: AZD-1222
     Indication: COVID-19 PROPHYLAXIS
     Dosage: 0.5 ML, OTHER
     Route: 030
     Dates: start: 20210619, end: 20210619
  11. NIRAPARIB [Suspect]
     Active Substance: NIRAPARIB
     Indication: OVARIAN CANCER
     Dosage: 100 MG
     Dates: end: 20210712
  12. DOSTARLIMAB [Suspect]
     Active Substance: DOSTARLIMAB
     Dosage: 1000 MG
     Dates: start: 20210712, end: 20210712

REACTIONS (1)
  - Infected lymphocele [Recovered/Resolved]

NARRATIVE: CASE EVENT DATE: 20210713
